FAERS Safety Report 8378108-8 (Version None)
Quarter: 2012Q2

REPORT INFORMATION
  Report Type: 
  Country: None (occurrence: None)
  Receive Date: 20120522
  Receipt Date: 20120510
  Transmission Date: 20120825
  Serious: Yes (Life-Threatening, Hospitalization, Other)
  Sender: FDA-Public Use
  Company Number: US-ACTELION-A-NJ2008-20746

PATIENT

DRUGS (24)
  1. FLOLAN [Concomitant]
  2. LORATADINE [Concomitant]
  3. FLUTICASONE FUROATE [Concomitant]
  4. MUCINEX [Concomitant]
  5. FERROUS SULFATE TAB [Concomitant]
  6. CALCIUM CARBONATE [Concomitant]
  7. TRACLEER [Suspect]
     Dosage: 62.5 MG, BID
     Route: 048
     Dates: start: 20080429, end: 20080630
  8. TEMAZEPAM [Concomitant]
  9. TYLENOL [Concomitant]
  10. ETHACRYNIC ACID [Concomitant]
  11. TRACLEER [Suspect]
     Indication: PULMONARY ARTERIAL HYPERTENSION
     Dosage: 125 MG, BID
     Route: 048
     Dates: start: 20080701
  12. ALENDRONATE SODIUM [Concomitant]
  13. POTASSIUM CHLORIDE [Concomitant]
  14. AYR SALINE [Concomitant]
  15. ASPERCREME [Concomitant]
  16. REFRESH TEARS LUBRICANT [Concomitant]
  17. LEVOXYL [Concomitant]
  18. OMEPRAZOLE [Concomitant]
  19. CALTRATE + D [Concomitant]
  20. REVATIO [Concomitant]
  21. WARFARIN SODIUM [Concomitant]
  22. CYANOCOBALAMIN [Concomitant]
  23. IMODIUM [Concomitant]
  24. MULTI-VITAMINS [Concomitant]

REACTIONS (11)
  - TRANSFUSION [None]
  - ANAEMIA [None]
  - GASTROINTESTINAL HAEMORRHAGE [None]
  - NASAL INFLAMMATION [None]
  - RHEUMATOID ARTHRITIS [None]
  - OCULAR DISCOMFORT [None]
  - TACHYCARDIA [None]
  - DYSPNOEA [None]
  - FATIGUE [None]
  - HAEMORRHAGE [None]
  - ABNORMAL LOSS OF WEIGHT [None]
